FAERS Safety Report 12917388 (Version 1)
Quarter: 2016Q4

REPORT INFORMATION
  Report Type: Spontaneous
  Country: US (occurrence: US)
  Receive Date: 20161107
  Receipt Date: 20161107
  Transmission Date: 20170207
  Serious: No
  Sender: FDA-Public Use
  Company Number: US-ASTRAZENECA-2016SF13878

PATIENT
  Age: 68 Year
  Sex: Male
  Weight: 90.3 kg

DRUGS (4)
  1. LORTAB HYDROCODONE [Concomitant]
     Indication: PAIN
     Dosage: 7.5MG/325MG , DAILY AS REQUIRED
     Route: 048
  2. MOVANTIK [Suspect]
     Active Substance: NALOXEGOL OXALATE
     Indication: CONSTIPATION
     Route: 048
     Dates: start: 20161025
  3. ULTRAM TRAMADOL [Concomitant]
     Indication: PAIN
     Route: 048
  4. PAIN SHOTS [Concomitant]
     Indication: PAIN
     Route: 065
     Dates: start: 20161025

REACTIONS (4)
  - Anxiety [Unknown]
  - Dysphemia [Unknown]
  - Nervousness [Unknown]
  - Diarrhoea [Unknown]

NARRATIVE: CASE EVENT DATE: 20161025
